FAERS Safety Report 21653026 (Version 4)
Quarter: 2023Q1

REPORT INFORMATION
  Report Type: Report from Study
  Country: CA (occurrence: CA)
  Receive Date: 20221128
  Receipt Date: 20230113
  Transmission Date: 20230418
  Serious: Yes (Hospitalization, Other)
  Sender: FDA-Public Use
  Company Number: CA-GILEAD-2022-0604442

PATIENT
  Age: 49 Year
  Sex: Female
  Weight: 71 kg

DRUGS (6)
  1. SACITUZUMAB GOVITECAN-HZIY [Suspect]
     Active Substance: SACITUZUMAB GOVITECAN-HZIY
     Indication: Triple negative breast cancer
     Dosage: 670 MG
     Route: 042
     Dates: start: 20221028
  2. SACITUZUMAB GOVITECAN-HZIY [Suspect]
     Active Substance: SACITUZUMAB GOVITECAN-HZIY
     Dosage: 705 MG
     Route: 042
     Dates: start: 20221104
  3. SACITUZUMAB GOVITECAN-HZIY [Suspect]
     Active Substance: SACITUZUMAB GOVITECAN-HZIY
     Dosage: 710 MG
     Route: 042
  4. SACITUZUMAB GOVITECAN-HZIY [Suspect]
     Active Substance: SACITUZUMAB GOVITECAN-HZIY
     Dosage: 500 MG
     Route: 042
     Dates: end: 20230104
  5. LYNPARZA [Concomitant]
     Active Substance: OLAPARIB
  6. FEC D [Concomitant]

REACTIONS (7)
  - Abscess [Unknown]
  - Neutropenic colitis [Unknown]
  - Weight increased [Unknown]
  - Dose calculation error [Unknown]
  - Intentional dose omission [Unknown]
  - Inappropriate schedule of product administration [Not Recovered/Not Resolved]
  - Colitis [Unknown]

NARRATIVE: CASE EVENT DATE: 20221104
